FAERS Safety Report 4985638-5 (Version None)
Quarter: 2006Q2

REPORT INFORMATION
  Report Type: 
  Country: None (occurrence: None)
  Receive Date: 20060426
  Receipt Date: 20060426
  Transmission Date: 20061013
  Serious: Yes (Hospitalization)
  Sender: FDA-Public Use
  Company Number: None

PATIENT
  Age: 89 Year
  Sex: Male
  Weight: 90.2658 kg

DRUGS (5)
  1. FUROSEMIDE [Suspect]
     Indication: ATRIAL FIBRILLATION
  2. FUROSEMIDE [Suspect]
     Indication: CARDIAC FAILURE CONGESTIVE
  3. FUROSEMIDE [Suspect]
     Indication: CORONARY ARTERY DISEASE
  4. CAPTOPRIL [Suspect]
  5. METOPROLOL 25 MG BID [Suspect]

REACTIONS (2)
  - DEHYDRATION [None]
  - HYPOTENSION [None]
